FAERS Safety Report 4888327-0 (Version None)
Quarter: 2006Q1

REPORT INFORMATION
  Report Type: 
  Country: None (occurrence: None)
  Receive Date: 20060123
  Receipt Date: 20060116
  Transmission Date: 20060701
  Serious: No
  Sender: FDA-Public Use
  Company Number: AU-GLAXOSMITHKLINE-B0406755A

PATIENT
  Sex: Male

DRUGS (1)
  1. ZYBAN [Suspect]
     Indication: DEPRESSION
     Route: 065

REACTIONS (5)
  - ERYTHEMA [None]
  - PRURITUS [None]
  - RASH [None]
  - SKIN NODULE [None]
  - URTICARIA [None]
